FAERS Safety Report 6432546-9 (Version None)
Quarter: 2009Q4

REPORT INFORMATION
  Report Type: 
  Country: None (occurrence: None)
  Receive Date: 20091105
  Receipt Date: 20091021
  Transmission Date: 20100525
  Serious: Yes (Hospitalization)
  Sender: FDA-Public Use
  Company Number: 2009-4346

PATIENT
  Sex: Male

DRUGS (1)
  1. APOKYN [Suspect]
     Indication: PARKINSON'S DISEASE
     Dosage: 0.2 ML, ONCE)
     Dates: start: 20090929, end: 20090929

REACTIONS (1)
  - GENERAL PHYSICAL HEALTH DETERIORATION [None]
